FAERS Safety Report 14805044 (Version 1)
Quarter: 2018Q2

REPORT INFORMATION
  Report Type: Spontaneous
  Country: PL (occurrence: PL)
  Receive Date: 20180425
  Receipt Date: 20180425
  Transmission Date: 20180711
  Serious: Yes (Hospitalization, Other)
  Sender: FDA-Public Use
  Company Number: PL-B.I. PHARMACEUTICALS,INC./RIDGEFIELD-2018-BI-022262

PATIENT
  Age: 60 Year
  Sex: Female

DRUGS (3)
  1. PRADAXA [Suspect]
     Active Substance: DABIGATRAN ETEXILATE MESYLATE
     Indication: THROMBOSIS
     Route: 065
     Dates: start: 20180329
  2. ARAVA [Concomitant]
     Active Substance: LEFLUNOMIDE
     Indication: RHEUMATIC DISORDER
     Route: 065
  3. METYPRET [Concomitant]
     Indication: RHEUMATIC DISORDER
     Route: 065

REACTIONS (2)
  - Ischaemic stroke [Recovered/Resolved]
  - Haematuria [Unknown]

NARRATIVE: CASE EVENT DATE: 20180330
